FAERS Safety Report 4454527-7 (Version None)
Quarter: 2004Q3

REPORT INFORMATION
  Report Type: 
  Country: None (occurrence: None)
  Receive Date: 20040921
  Receipt Date: 20040910
  Transmission Date: 20050211
  Serious: Yes (Life-Threatening, Hospitalization)
  Sender: FDA-Public Use
  Company Number: CA-JNJFOC-20040601518

PATIENT
  Age: 25 Year
  Sex: Male
  Weight: 90.72 kg

DRUGS (2)
  1. DURAGESIC [Suspect]
     Indication: INTENTIONAL MISUSE
     Dosage: 2 TO 3 PATCHES
     Route: 062
     Dates: start: 20040527, end: 20040528
  2. SALBUTAMOL MDI [Concomitant]
     Indication: DRUG USE FOR UNKNOWN INDICATION
     Dosage: 2 PUFFS PRN
     Route: 055

REACTIONS (6)
  - ASPIRATION BRONCHIAL [None]
  - HYPOTENSION [None]
  - INTENTIONAL MISUSE [None]
  - INTENTIONAL OVERDOSE [None]
  - LOSS OF CONSCIOUSNESS [None]
  - PULSE ABSENT [None]
